FAERS Safety Report 23359211 (Version 1)
Quarter: 2024Q1

REPORT INFORMATION
  Report Type: Spontaneous
  Country: GR (occurrence: GR)
  Receive Date: 20240102
  Receipt Date: 20240102
  Transmission Date: 20240410
  Serious: Yes (Hospitalization)
  Sender: FDA-Public Use
  Company Number: GR-BAUSCHBL-2023BNL013759

PATIENT
  Age: 70 Year
  Sex: Female

DRUGS (1)
  1. BROMFENAC SODIUM [Suspect]
     Active Substance: BROMFENAC SODIUM
     Indication: Preoperative care
     Dosage: IN LEFT EYE FOR 4 DAYS
     Route: 047

REACTIONS (1)
  - Ulcerative keratitis [Recovering/Resolving]
